FAERS Safety Report 18271812 (Version 2)
Quarter: 2020Q4

REPORT INFORMATION
  Report Type: Spontaneous
  Country: US (occurrence: US)
  Receive Date: 20200916
  Receipt Date: 20201021
  Transmission Date: 20210113
  Serious: No
  Sender: FDA-Public Use
  Company Number: US-APOTEX-2020AP017069

PATIENT
  Sex: Male

DRUGS (1)
  1. FENTANYL. [Suspect]
     Active Substance: FENTANYL
     Indication: PRODUCT USED FOR UNKNOWN INDICATION
     Dosage: 1 DOSAGE FORM, EVERY 72 HOUR
     Route: 065

REACTIONS (6)
  - Migraine [Unknown]
  - Unevaluable event [Unknown]
  - Product adhesion issue [Unknown]
  - Product substitution issue [Unknown]
  - Drug effect less than expected [Unknown]
  - Loss of personal independence in daily activities [Unknown]
